FAERS Safety Report 21926830 (Version 1)
Quarter: 2023Q1

REPORT INFORMATION
  Report Type: Spontaneous
  Country: US (occurrence: US)
  Receive Date: 20230130
  Receipt Date: 20230130
  Transmission Date: 20230418
  Serious: Yes (Hospitalization)
  Sender: FDA-Public Use
  Company Number: US-OTSUKA-2023_002143

PATIENT
  Sex: Male

DRUGS (1)
  1. ABILIFY [Suspect]
     Active Substance: ARIPIPRAZOLE
     Indication: Product used for unknown indication
     Dosage: UNK
     Route: 065
     Dates: start: 202104, end: 202110

REACTIONS (4)
  - Psychotic disorder [Unknown]
  - Catatonia [Unknown]
  - Impaired work ability [Unknown]
  - Malaise [Unknown]

NARRATIVE: CASE EVENT DATE: 20210503
